FAERS Safety Report 24685562 (Version 1)
Quarter: 2024Q4

REPORT INFORMATION
  Report Type: Spontaneous
  Country: CN (occurrence: CN)
  Receive Date: 20241202
  Receipt Date: 20241202
  Transmission Date: 20250114
  Serious: Yes (Other)
  Sender: BRACCO
  Company Number: CN-BRACCO-2024CN07467

PATIENT
  Age: 51 Year
  Sex: Male

DRUGS (3)
  1. SULFUR HEXAFLUORIDE [Suspect]
     Active Substance: SULFUR HEXAFLUORIDE
     Indication: Ultrasound scan
     Dosage: 2 ML, SINGLE
     Route: 042
     Dates: start: 20241121, end: 20241121
  2. SULFUR HEXAFLUORIDE [Suspect]
     Active Substance: SULFUR HEXAFLUORIDE
     Indication: Ultrasound scan
     Dosage: 2 ML, SINGLE
     Route: 042
     Dates: start: 20241121, end: 20241121
  3. SULFUR HEXAFLUORIDE [Suspect]
     Active Substance: SULFUR HEXAFLUORIDE
     Indication: Ultrasound scan
     Dosage: 2 ML, SINGLE
     Route: 042
     Dates: start: 20241121, end: 20241121

REACTIONS (6)
  - Off label use [Recovered/Resolved]
  - Blood pressure decreased [Recovered/Resolved]
  - Heart rate decreased [Recovered/Resolved]
  - Cold sweat [Recovered/Resolved]
  - Nausea [Recovered/Resolved]
  - Pruritus [Recovered/Resolved]

NARRATIVE: CASE EVENT DATE: 20241121
